FAERS Safety Report 6619674-X (Version None)
Quarter: 2010Q1

REPORT INFORMATION
  Report Type: 
  Country: None (occurrence: None)
  Receive Date: 20100309
  Receipt Date: 20100302
  Transmission Date: 20100710
  Serious: Yes (Other)
  Sender: FDA-Public Use
  Company Number: ES-JNJFOC-20100301468

PATIENT
  Age: 73 Year
  Sex: Female

DRUGS (10)
  1. DURAGESIC-100 [Suspect]
     Indication: SCIATICA
     Route: 062
  2. LYRICA [Suspect]
     Indication: SCIATICA
     Route: 048
  3. AMOXICILLIN AND CLAVULANATE POTASSIUM [Suspect]
     Indication: RESPIRATORY TRACT INFECTION
     Route: 042
  4. HALOPERIDOL [Concomitant]
     Indication: AGITATION
  5. PRIMPERAN [Concomitant]
     Indication: VOMITING
     Route: 042
  6. LEVOTIROXIN [Concomitant]
     Indication: HYPOTHYROIDISM
  7. PARACETAMOL [Concomitant]
     Indication: SCIATICA
     Route: 042
  8. OMEPRAZOLE [Concomitant]
     Indication: PROPHYLAXIS
     Route: 048
  9. CO-RENITEC [Concomitant]
     Indication: HYPERTENSION
     Route: 048
  10. NOLOTIL [Concomitant]
     Indication: SCIATICA
     Route: 042

REACTIONS (1)
  - TRANSAMINASES INCREASED [None]
